FAERS Safety Report 9236308 (Version 1)
Quarter: 2013Q2

REPORT INFORMATION
  Report Type: Spontaneous
  Country: US (occurrence: US)
  Receive Date: 20130417
  Receipt Date: 20130417
  Transmission Date: 20140414
  Serious: Yes (Hospitalization)
  Sender: FDA-Public Use
  Company Number: US-BAXTER-2013BAX008941

PATIENT
  Sex: Female

DRUGS (2)
  1. DIANEAL LOW CALCIUM [Suspect]
     Indication: PERITONEAL DIALYSIS
     Dosage: 11600 ML
     Route: 033
     Dates: start: 201105
  2. DIANEAL LOW CALCIUM [Suspect]
     Indication: PERITONEAL DIALYSIS
     Dosage: 11600 ML
     Route: 033
     Dates: start: 201105

REACTIONS (2)
  - Condition aggravated [Recovering/Resolving]
  - Hyperparathyroidism [Recovering/Resolving]
